FAERS Safety Report 13670744 (Version 1)
Quarter: 2017Q2

REPORT INFORMATION
  Report Type: Spontaneous
  Country: US (occurrence: US)
  Receive Date: 20170620
  Receipt Date: 20170620
  Transmission Date: 20170830
  Serious: No
  Sender: FDA-Public Use
  Company Number: US-ROCHE-1127241

PATIENT
  Age: 51 Year
  Sex: Male
  Weight: 77.18 kg

DRUGS (5)
  1. IV FLUIDS (UNK INGREDIENTS) [Concomitant]
     Indication: PRODUCT USED FOR UNKNOWN INDICATION
     Route: 042
  2. UDDERLY SMOOTH CREAM [Concomitant]
     Indication: DRY SKIN
     Route: 061
  3. CAPECITABINE. [Suspect]
     Active Substance: CAPECITABINE
     Route: 048
     Dates: start: 201208
  4. CHEMOTHERAPY (UNK INGREDIENTS) [Concomitant]
     Indication: OESOPHAGEAL CARCINOMA
     Route: 042
  5. CAPECITABINE. [Suspect]
     Active Substance: CAPECITABINE
     Indication: OESOPHAGEAL CARCINOMA
     Route: 048
     Dates: start: 20120630, end: 201209

REACTIONS (9)
  - Gait disturbance [Recovering/Resolving]
  - Hyperkeratosis [Not Recovered/Not Resolved]
  - Skin exfoliation [Recovering/Resolving]
  - Temperature intolerance [Recovering/Resolving]
  - Dehydration [Recovering/Resolving]
  - Diarrhoea [Not Recovered/Not Resolved]
  - Dry skin [Not Recovered/Not Resolved]
  - Hyperaesthesia [Recovering/Resolving]
  - Weight decreased [Recovering/Resolving]

NARRATIVE: CASE EVENT DATE: 201209
